FAERS Safety Report 9859364 (Version 3)
Quarter: 2014Q3

REPORT INFORMATION
  Report Type: Spontaneous
  Country: US (occurrence: US)
  Receive Date: 20140131
  Receipt Date: 20140923
  Transmission Date: 20150326
  Serious: Yes (Hospitalization, Other)
  Sender: FDA-Public Use
  Company Number: US-009507513-1401USA014814

PATIENT
  Sex: Female
  Weight: 63.49 kg

DRUGS (1)
  1. NUVARING [Suspect]
     Active Substance: ETHINYL ESTRADIOL\ETONOGESTREL
     Indication: CONTRACEPTION
     Dosage: UNK
     Route: 067
     Dates: start: 20100803

REACTIONS (11)
  - Treatment noncompliance [Unknown]
  - Suicidal ideation [Unknown]
  - Social problem [Unknown]
  - Intracranial venous sinus thrombosis [Recovering/Resolving]
  - Urinary tract infection [Recovered/Resolved]
  - Anxiety [Unknown]
  - Depression [Unknown]
  - Dehydration [Unknown]
  - Hypertension [Unknown]
  - Back pain [Unknown]
  - Vaginal discharge [Unknown]

NARRATIVE: CASE EVENT DATE: 201012
